FAERS Safety Report 9235915 (Version 2)
Quarter: 2013Q2

REPORT INFORMATION
  Report Type: Spontaneous
  Country: US (occurrence: US)
  Receive Date: 20130417
  Receipt Date: 20130611
  Transmission Date: 20140414
  Serious: Yes (Hospitalization, Other)
  Sender: FDA-Public Use
  Company Number: US-BAYER-2013-048222

PATIENT
  Age: 31 Year
  Sex: Female

DRUGS (3)
  1. BEYAZ [Suspect]
     Dosage: UNK
     Dates: start: 201103
  2. YASMIN [Suspect]
  3. IBUPROFEN [Concomitant]

REACTIONS (7)
  - Deep vein thrombosis [None]
  - Vena cava thrombosis [None]
  - Deep vein thrombosis [None]
  - Pulmonary embolism [None]
  - Injury [None]
  - Pain [None]
  - Emotional distress [None]
